FAERS Safety Report 5916001-8 (Version None)
Quarter: 2008Q4

REPORT INFORMATION
  Report Type: 
  Country: None (occurrence: None)
  Receive Date: 20081013
  Receipt Date: 20081002
  Transmission Date: 20090506
  Serious: Yes (Other)
  Sender: FDA-Public Use
  Company Number: US-JNJFOC-20071006112

PATIENT
  Sex: Male
  Weight: 106.6 kg

DRUGS (8)
  1. DURAGESIC-100 [Suspect]
     Route: 062
  2. DURAGESIC-100 [Suspect]
     Indication: PAIN
     Route: 062
  3. DURAGESIC-100 [Suspect]
     Dosage: 36-40 HOURS
     Route: 062
  4. OXYCONTIN [Concomitant]
     Indication: BREAKTHROUGH PAIN
     Route: 048
  5. ESGIC [Concomitant]
     Indication: HEADACHE
     Route: 048
  6. DICYCLOMINE [Concomitant]
     Indication: DIVERTICULITIS
     Route: 048
  7. DICYCLOMINE [Concomitant]
     Indication: IRRITABLE BOWEL SYNDROME
     Route: 048
  8. LUMIGAN [Concomitant]
     Indication: GLAUCOMA
     Route: 031

REACTIONS (11)
  - ABDOMINAL DISCOMFORT [None]
  - BLOOD TESTOSTERONE DECREASED [None]
  - BREAKTHROUGH PAIN [None]
  - GLAUCOMA [None]
  - INADEQUATE ANALGESIA [None]
  - INAPPROPRIATE SCHEDULE OF DRUG ADMINISTRATION [None]
  - PRODUCT QUALITY ISSUE [None]
  - RASH GENERALISED [None]
  - ROAD TRAFFIC ACCIDENT [None]
  - STRESS [None]
  - THROMBOSIS [None]
